FAERS Safety Report 5989647-9 (Version None)
Quarter: 2008Q4

REPORT INFORMATION
  Report Type: 
  Country: None (occurrence: None)
  Receive Date: 20081208
  Receipt Date: 20081127
  Transmission Date: 20090506
  Serious: Yes (Other)
  Sender: FDA-Public Use
  Company Number: 2008-04507

PATIENT
  Age: 69 Year
  Sex: Male

DRUGS (1)
  1. VELCADE [Suspect]
     Indication: MANTLE CELL LYMPHOMA
     Dosage: 1.3 MG, INTRAVENOUS
     Route: 042

REACTIONS (2)
  - DISEASE PROGRESSION [None]
  - HIGH DENSITY LIPOPROTEIN INCREASED [None]
